FAERS Safety Report 20752866 (Version 1)
Quarter: 2022Q2

REPORT INFORMATION
  Report Type: Spontaneous
  Country: US (occurrence: None)
  Receive Date: 20220426
  Receipt Date: 20220426
  Transmission Date: 20220721
  Serious: No
  Sender: FDA-Public Use
  Company Number: US-ROCHE-2930990

PATIENT
  Sex: Female
  Weight: 53.572 kg

DRUGS (2)
  1. ESBRIET [Suspect]
     Active Substance: PIRFENIDONE
     Indication: Pulmonary fibrosis
     Dosage: TAKE THREE 267MG TABLETS THREE TIMES A DAY TOTAL OF 9 TABLETS ;ONGOING: NO
     Route: 048
     Dates: end: 202109
  2. ESBRIET [Suspect]
     Active Substance: PIRFENIDONE
     Dosage: SELF INITIATED DOSE TAKING THREE 267MG TABLETS TWICE A DAILY FOR A TOTAL OF 6 TABLETS ;ONGOING: YES
     Route: 048
     Dates: start: 202109

REACTIONS (3)
  - Nausea [Not Recovered/Not Resolved]
  - Somnolence [Unknown]
  - Drug intolerance [Not Recovered/Not Resolved]

NARRATIVE: CASE EVENT DATE: 20210901
